FAERS Safety Report 5842744-0 (Version None)
Quarter: 2008Q3

REPORT INFORMATION
  Report Type: 
  Country: None (occurrence: None)
  Receive Date: 20080808
  Receipt Date: 20080530
  Transmission Date: 20090109
  Serious: Yes (Hospitalization)
  Sender: FDA-Public Use
  Company Number: 2008PL000085

PATIENT
  Age: 48 Year
  Sex: Female
  Weight: 50.8029 kg

DRUGS (5)
  1. LOTRONEX [Suspect]
     Indication: IRRITABLE BOWEL SYNDROME
     Dosage: PO; PO;  2 MG;BID;PO
     Route: 048
     Dates: start: 19990101
  2. LOTRONEX [Suspect]
     Indication: IRRITABLE BOWEL SYNDROME
     Dosage: PO; PO;  2 MG;BID;PO
     Route: 048
     Dates: start: 20020101
  3. NEURONTIN [Concomitant]
  4. KLONOPIN [Concomitant]
  5. DONNATAL [Concomitant]

REACTIONS (2)
  - ABDOMINAL RIGIDITY [None]
  - CLOSTRIDIAL INFECTION [None]
